FAERS Safety Report 10570531 (Version 7)
Quarter: 2018Q1

REPORT INFORMATION
  Report Type: Spontaneous
  Country: US (occurrence: US)
  Receive Date: 20141107
  Receipt Date: 20180111
  Transmission Date: 20180508
  Serious: Yes (Hospitalization, Disabling, Other)
  Sender: FDA-Public Use
  Company Number: US-009507513-1411USA000525

PATIENT
  Sex: Female

DRUGS (5)
  1. OMEGA-3 MARINE TRIGLYCERIDES [Concomitant]
     Active Substance: FISH OIL
     Indication: PRODUCT USED FOR UNKNOWN INDICATION
     Dosage: 1250 MG, UNKNOWN
     Route: 065
     Dates: start: 2000
  2. CITRACAL [Concomitant]
     Active Substance: CALCIUM CITRATE
     Indication: PRODUCT USED FOR UNKNOWN INDICATION
     Dosage: 500 MG, UNKNOWN
     Route: 065
     Dates: start: 2000
  3. FOSAMAX [Suspect]
     Active Substance: ALENDRONATE SODIUM
     Indication: OSTEOPOROSIS
     Dosage: 70 MG, QW
     Route: 048
     Dates: start: 2001, end: 201110
  4. OCUVITE LUTEIN (ASCORBIC ACID (+) BETA CAROTENE (+) COPPER (UNSPECIFIE [Concomitant]
     Indication: PRODUCT USED FOR UNKNOWN INDICATION
     Dosage: UNK, UNKNOWN
     Route: 065
     Dates: start: 2000
  5. VITAMIN D [Concomitant]
     Active Substance: CHOLECALCIFEROL
     Indication: PRODUCT USED FOR UNKNOWN INDICATION
     Dosage: 50 K, UNKNOWN
     Route: 065
     Dates: start: 2000

REACTIONS (19)
  - Parkinson^s disease [Unknown]
  - Femur fracture [Unknown]
  - Osteoarthritis [Unknown]
  - Back pain [Unknown]
  - Arthralgia [Unknown]
  - Restless legs syndrome [Unknown]
  - Joint dislocation [Unknown]
  - Impaired healing [Unknown]
  - Anxiety [Unknown]
  - Fall [Unknown]
  - Arthritis [Unknown]
  - Spinal osteoarthritis [Unknown]
  - Spondylolisthesis [Unknown]
  - Femur fracture [Recovering/Resolving]
  - Pain [Unknown]
  - Arthropathy [Unknown]
  - Oedema peripheral [Unknown]
  - Spinal compression fracture [Unknown]
  - Musculoskeletal pain [Unknown]

NARRATIVE: CASE EVENT DATE: 2006
